FAERS Safety Report 4923585-5 (Version None)
Quarter: 2006Q1

REPORT INFORMATION
  Report Type: 
  Country: None (occurrence: None)
  Receive Date: 20060227
  Receipt Date: 20060110
  Transmission Date: 20060701
  Serious: Yes (Other)
  Sender: FDA-Public Use
  Company Number: JP-BRISTOL-MYERS SQUIBB COMPANY-13241328

PATIENT
  Age: 41 Year
  Sex: Male
  Weight: 56 kg

DRUGS (3)
  1. ENTECAVIR [Suspect]
     Indication: HEPATITIS B
     Route: 048
     Dates: start: 20040430, end: 20060105
  2. ISODINE [Concomitant]
     Indication: THIRST
     Dates: start: 20031128
  3. POSTERISAN FORTE [Concomitant]
     Indication: PRURITUS ANI
     Dates: start: 20050204

REACTIONS (1)
  - BASAL CELL CARCINOMA [None]
